FAERS Safety Report 19364002 (Version 2)
Quarter: 2021Q2

REPORT INFORMATION
  Report Type: Spontaneous
  Country: US (occurrence: US)
  Receive Date: 20210603
  Receipt Date: 20210624
  Transmission Date: 20210717
  Serious: Yes (Hospitalization)
  Sender: FDA-Public Use
  Company Number: US-PROCTER_AND_GAMBLE-PH21004274

PATIENT
  Age: 37 Year
  Sex: Male

DRUGS (4)
  1. PSYLLIUM [PSYLLIUM HYDROPHILIC MUCILLOID] [Suspect]
     Active Substance: PSYLLIUM HUSK
     Dosage: 3 GRAM, 2 /DAY (3 G TWICE DAILY)
     Route: 048
  2. OLANZAPINE. [Suspect]
     Active Substance: OLANZAPINE
     Dosage: 5 MG IN THE MORNING AND 15 MG IN THE EVENING
     Route: 048
  3. OLANZAPINE. [Suspect]
     Active Substance: OLANZAPINE
     Dosage: 10 MILLIGRAM, 2 /DAY (10 MG TWICE DAILY)
     Route: 048
  4. BUPRENORPHINE. [Concomitant]
     Active Substance: BUPRENORPHINE
     Dosage: 12 MILLIGRAM, DAILY

REACTIONS (6)
  - Drug interaction [Unknown]
  - Condition aggravated [Recovering/Resolving]
  - Delusion [Recovered/Resolved]
  - Therapeutic response decreased [Recovering/Resolving]
  - Psychotic disorder [Recovering/Resolving]
  - Paranoia [Recovering/Resolving]
